FAERS Safety Report 5488006-5 (Version None)
Quarter: 2007Q4

REPORT INFORMATION
  Report Type: 
  Country: None (occurrence: None)
  Receive Date: 20071012
  Receipt Date: 20071012
  Transmission Date: 20080405
  Serious: Yes (Other)
  Sender: FDA-Public Use
  Company Number: None

PATIENT
  Sex: Female
  Weight: 61.2356 kg

DRUGS (4)
  1. AVELOX [Suspect]
     Indication: SINUSITIS
     Dosage: 400MG ONCE DAILY PO
     Route: 048
     Dates: start: 20070201, end: 20070207
  2. AVELOX [Suspect]
     Indication: SINUSITIS
     Dosage: 400MG ONCE DAILY PO
     Route: 048
     Dates: start: 20071005, end: 20071008
  3. FLONASE [Concomitant]
  4. ALLEGRA [Concomitant]

REACTIONS (4)
  - PATELLOFEMORAL PAIN SYNDROME [None]
  - SINUSITIS [None]
  - TENDON RUPTURE [None]
  - TENDONITIS [None]
